FAERS Safety Report 10029094 (Version 1)
Quarter: 2014Q1

REPORT INFORMATION
  Report Type: Spontaneous
  Country: TR (occurrence: TR)
  Receive Date: 20140321
  Receipt Date: 20140321
  Transmission Date: 20141002
  Serious: Yes (Hospitalization)
  Sender: FDA-Public Use
  Company Number: ALCN2014TR001747

PATIENT
  Sex: 0

DRUGS (2)
  1. ALCAINE [Suspect]
     Indication: FLATULENCE
     Dosage: UNK
     Route: 048
     Dates: start: 2011, end: 2011
  2. BIOGAIA [Suspect]
     Indication: FLATULENCE

REACTIONS (2)
  - Drug dispensing error [Recovered/Resolved]
  - Incorrect route of drug administration [Recovered/Resolved]
